FAERS Safety Report 24292076 (Version 1)
Quarter: 2024Q3

REPORT INFORMATION
  Report Type: Spontaneous
  Country: US (occurrence: None)
  Receive Date: 20240906
  Receipt Date: 20240906
  Transmission Date: 20241017
  Serious: No
  Sender: DOMPE FARMACEUTICI
  Company Number: US-FARMAPROD-202305-1563

PATIENT
  Age: 28 Year
  Sex: Female

DRUGS (14)
  1. OXERVATE [Suspect]
     Active Substance: CENEGERMIN-BKBJ
     Indication: Neurotrophic keratopathy
     Route: 047
     Dates: start: 20230523, end: 20230713
  2. OXERVATE [Suspect]
     Active Substance: CENEGERMIN-BKBJ
     Route: 047
     Dates: start: 20231002
  3. OXERVATE [Suspect]
     Active Substance: CENEGERMIN-BKBJ
  4. LOTEPREDNOL ETABONATE [Concomitant]
     Active Substance: LOTEPREDNOL ETABONATE
  5. VALACYCLOVIR [Concomitant]
     Active Substance: VALACYCLOVIR HYDROCHLORIDE
  6. ERYTHROMYCIN [Concomitant]
     Active Substance: ERYTHROMYCIN
  7. DOXYCYCLINE HYCLATE [Concomitant]
     Active Substance: DOXYCYCLINE HYCLATE
  8. REFRESH CELLUVISC [Concomitant]
     Active Substance: CARBOXYMETHYLCELLULOSE SODIUM
  9. PREDNISOLONE-NEPAFENAC [Concomitant]
  10. REFRESH P.M. [Concomitant]
     Active Substance: MINERAL OIL\PETROLATUM
     Dosage: 42.5-57.3%
  11. VITAMIN C [Concomitant]
     Active Substance: ASCORBIC ACID
  12. ZINC [Concomitant]
     Active Substance: ZINC
  13. VALTREX [Concomitant]
     Active Substance: VALACYCLOVIR HYDROCHLORIDE
  14. MOXIFLOXACIN [Concomitant]
     Active Substance: MOXIFLOXACIN

REACTIONS (5)
  - Wrong technique in product usage process [Unknown]
  - Eye pain [Recovered/Resolved]
  - Eye swelling [Recovered/Resolved]
  - Off label use [Unknown]
  - Photophobia [Unknown]

NARRATIVE: CASE EVENT DATE: 20230101
